FAERS Safety Report 24393828 (Version 1)
Quarter: 2024Q4

REPORT INFORMATION
  Report Type: Spontaneous
  Country: HU (occurrence: HU)
  Receive Date: 20241003
  Receipt Date: 20241003
  Transmission Date: 20250114
  Serious: Yes (Other)
  Sender: NOVARTIS
  Company Number: HU-002147023-NVSC2024HU194476

PATIENT

DRUGS (1)
  1. ASCIMINIB [Suspect]
     Active Substance: ASCIMINIB
     Indication: Product used for unknown indication
     Dosage: UNK
     Route: 065

REACTIONS (1)
  - Hepatic cirrhosis [Unknown]
